FAERS Safety Report 9166662 (Version 1)
Quarter: 2013Q1

REPORT INFORMATION
  Report Type: Report from Study
  Country: DE (occurrence: DE)
  Receive Date: 20130315
  Receipt Date: 20130315
  Transmission Date: 20140127
  Serious: Yes (Hospitalization)
  Sender: FDA-Public Use
  Company Number: DE-UCBSA-080383

PATIENT
  Age: 55 Year
  Sex: Male

DRUGS (7)
  1. VIMPAT [Suspect]
     Indication: EPILEPSY
     Dosage: DAILY DOSE: 100 MG
     Dates: start: 20101030
  2. VIMPAT [Suspect]
     Indication: EPILEPSY
     Dosage: DAILY DOSE: 300 MG
     Dates: end: 20110328
  3. LAMOTRIGINE [Concomitant]
     Indication: EPILEPSY
     Dosage: DAILY DOSE: 300 MG
  4. LAMOTRIGINE [Concomitant]
     Indication: EPILEPSY
     Dosage: DAILY DOSE: 200 MG
     Dates: end: 2011
  5. LAMOTRIGINE [Concomitant]
     Indication: EPILEPSY
     Dosage: DAILY DOSE: 150 MG
     Dates: start: 2011
  6. VALPROATE [Concomitant]
     Indication: EPILEPSY
     Dosage: DAILY DOSE: 500 MG
  7. OXCARBAZEPINE [Concomitant]
     Indication: EPILEPSY
     Dosage: DAILY DOSE: 900 MG
     Dates: start: 2011

REACTIONS (2)
  - Epilepsy [Unknown]
  - Drug ineffective [Recovered/Resolved]
